FAERS Safety Report 14492014 (Version 1)
Quarter: 2018Q1

REPORT INFORMATION
  Report Type: Spontaneous
  Country: FR (occurrence: FR)
  Receive Date: 20180206
  Receipt Date: 20180206
  Transmission Date: 20180509
  Serious: Yes (Hospitalization)
  Sender: FDA-Public Use
  Company Number: FR-JNJFOC-20180203983

PATIENT
  Age: 82 Year
  Sex: Female

DRUGS (4)
  1. XARELTO [Suspect]
     Active Substance: RIVAROXABAN
     Indication: ATRIAL FIBRILLATION
     Route: 048
     Dates: end: 20171109
  2. CORDARONE [Concomitant]
     Active Substance: AMIODARONE HYDROCHLORIDE
     Route: 048
  3. SECTRAL [Concomitant]
     Active Substance: ACEBUTOLOL HYDROCHLORIDE
     Route: 048
  4. INEXIUM [Concomitant]
     Active Substance: ESOMEPRAZOLE
     Route: 048

REACTIONS (2)
  - Subarachnoid haemorrhage [Recovering/Resolving]
  - Subdural hygroma [Recovering/Resolving]

NARRATIVE: CASE EVENT DATE: 20171109
